FAERS Safety Report 9961457 (Version 2)
Quarter: 2014Q2

REPORT INFORMATION
  Report Type: Spontaneous
  Country: US (occurrence: US)
  Receive Date: 20140305
  Receipt Date: 20140515
  Transmission Date: 20141212
  Serious: Yes (Other)
  Sender: FDA-Public Use
  Company Number: US-BAYER-2014-032532

PATIENT
  Age: 35 Year
  Sex: Female
  Weight: 65.76 kg

DRUGS (2)
  1. MIRENA [Suspect]
     Indication: CONTRACEPTION
     Dosage: 20 MCG/24HR, CONT
     Route: 015
     Dates: start: 20131230, end: 20140117
  2. LIDOCAINE [Concomitant]
     Indication: ANALGESIC THERAPY
     Dosage: UNK
     Dates: start: 20131230

REACTIONS (4)
  - Uterine perforation [Recovered/Resolved]
  - Procedural pain [None]
  - Abdominal pain [Recovered/Resolved]
  - Device dislocation [Recovered/Resolved]
